FAERS Safety Report 25037964 (Version 1)
Quarter: 2025Q1

REPORT INFORMATION
  Report Type: Spontaneous
  Country: CA (occurrence: CA)
  Receive Date: 20250304
  Receipt Date: 20250304
  Transmission Date: 20250408
  Serious: Yes (Hospitalization, Other)
  Sender: CSL BEHRING
  Company Number: CA-BEH-2025197278

PATIENT
  Age: 58 Year
  Sex: Male
  Weight: 111 kg

DRUGS (1)
  1. PRIVIGEN [Suspect]
     Active Substance: HUMAN IMMUNOGLOBULIN G
     Indication: Vasculitis
     Dosage: 20 G, QD
     Route: 042

REACTIONS (6)
  - Chills [Recovered/Resolved]
  - Flushing [Recovered/Resolved]
  - Oxygen therapy [Recovered/Resolved]
  - Product quality issue [Recovered/Resolved]
  - Wheezing [Recovered/Resolved]
  - Off label use [Unknown]
